FAERS Safety Report 10159222 (Version 1)
Quarter: 2014Q2

REPORT INFORMATION
  Report Type: Spontaneous
  Country: CA (occurrence: None)
  Receive Date: 20140506
  Receipt Date: 20140506
  Transmission Date: 20141212
  Serious: Yes (Hospitalization)
  Sender: FDA-Public Use
  Company Number: 2014HINLIT0418

PATIENT
  Age: 195 Day
  Sex: Female
  Weight: 6.5 kg

DRUGS (2)
  1. ESCITALOPRAM (ESCITALOPRAM) UNKNOWN [Suspect]
     Indication: DEPRESSION
     Dosage: 10 MG/DAY
     Route: 063
  2. BUPROPION XL (BUPROPION) UNKNOWN [Suspect]
     Indication: DEPRESSION
     Dosage: 150 MG/DAY
     Route: 063

REACTIONS (7)
  - Sleep disorder [None]
  - Vomiting [None]
  - Somnolence [None]
  - Hypertonia [None]
  - Cyanosis [None]
  - Exposure during breast feeding [None]
  - Maternal drugs affecting foetus [None]
